FAERS Safety Report 4397082-2 (Version None)
Quarter: 2004Q3

REPORT INFORMATION
  Report Type: 
  Country: None (occurrence: None)
  Receive Date: 20040708
  Receipt Date: 20040630
  Transmission Date: 20050211
  Serious: Yes (Life-Threatening)
  Sender: FDA-Public Use
  Company Number: 200410656BVD

PATIENT
  Age: 61 Year
  Sex: Male
  Weight: 70 kg

DRUGS (18)
  1. CIPROFLOXACIN [Suspect]
     Indication: PNEUMONIA
     Dosage: 500 MG, TOTAL DAILY, ORAL
     Route: 048
     Dates: start: 20040406, end: 20040416
  2. AMIODARON (AMIODARONE) [Suspect]
     Indication: VENTRICULAR FIBRILLATION
     Dosage: INTRAVENOUS
     Route: 042
     Dates: start: 20040412
  3. DIFLUCAN [Suspect]
     Indication: CANDIDIASIS
     Dosage: 200 MG, TOTAL DAILY, INTRAVENOUS
     Route: 042
     Dates: start: 20040415, end: 20040416
  4. AMPICILLIN SODIUM/SULBACTAM SODIUM [Concomitant]
  5. CEFOTAXIM [Concomitant]
  6. BELOC ZOK [Concomitant]
  7. DIGITOXIN TAB [Concomitant]
  8. UNAT [Concomitant]
  9. ALDACTONE [Concomitant]
  10. DELIX [Concomitant]
  11. ANTRA [Concomitant]
  12. ASPIRIN [Concomitant]
  13. DECORTIN H [Concomitant]
  14. SAB SIMPLEX [Concomitant]
  15. THIAMINE HCL [Concomitant]
  16. DULCOLAX [Concomitant]
  17. LACTULOSE [Concomitant]
  18. METOCLOPRAMIDE HYDROCHLORIDE [Concomitant]

REACTIONS (16)
  - ATELECTASIS [None]
  - CANDIDIASIS [None]
  - CARDIAC FAILURE [None]
  - CARDIOMYOPATHY ALCOHOLIC [None]
  - DRUG INTERACTION [None]
  - HAEMATOCHEZIA [None]
  - HAEMOGLOBIN DECREASED [None]
  - HYPERTENSION [None]
  - HYPOXIA [None]
  - ILEUS PARALYTIC [None]
  - LONG QT SYNDROME [None]
  - PNEUMONIA [None]
  - PYREXIA [None]
  - VENTRICULAR EXTRASYSTOLES [None]
  - VENTRICULAR FIBRILLATION [None]
  - X-RAY ABNORMAL [None]
